FAERS Safety Report 25973094 (Version 1)
Quarter: 2025Q4

REPORT INFORMATION
  Report Type: Spontaneous
  Country: EU (occurrence: EU)
  Receive Date: 20251029
  Receipt Date: 20251029
  Transmission Date: 20260118
  Serious: Yes (Life-Threatening, Other)
  Sender: MSN LABORATORIES PRIVATE LIMITED
  Company Number: None

PATIENT

DRUGS (12)
  1. CLOPIDOGREL [Suspect]
     Active Substance: CLOPIDOGREL BISULFATE
     Indication: Acute myocardial infarction
     Dosage: TABLET 75 MG (MILLIGRAM)
     Route: 048
     Dates: start: 20201103, end: 20250929
  2. ASPIRIN [Suspect]
     Active Substance: ASPIRIN
     Indication: Acute myocardial infarction
     Dosage: TABLET 80 MG (MILLIGRAM)
     Route: 048
     Dates: start: 20201103, end: 20250929
  3. METOPROLOL [Concomitant]
     Active Substance: METOPROLOL
     Indication: Product used for unknown indication
     Dosage: TABLET WITH REGULATED RELEASE (TABLET MET GEREGULEERDE AFGIFTE), 25 MG (MILLIGRAM)
     Route: 048
  4. LINAGLIPTIN [Concomitant]
     Active Substance: LINAGLIPTIN
     Indication: Product used for unknown indication
     Dosage: TABLET 5 MG (MILLIGRAM)
     Route: 048
  5. FUROSEMIDE [Concomitant]
     Active Substance: FUROSEMIDE
     Indication: Product used for unknown indication
     Dosage: TABLET 40 MG (MILLIGRAM)
     Route: 048
  6. FERROUS FUMARATE [Concomitant]
     Active Substance: FERROUS FUMARATE
     Indication: Product used for unknown indication
     Dosage: TABLET 200 MG (MILLIGRAM)
     Route: 048
  7. ENALAPRIL [Concomitant]
     Active Substance: ENALAPRIL
     Indication: Product used for unknown indication
     Dosage: TABLET 10 MG (MILLIGRAM)
     Route: 048
  8. ATORVASTATIN [Concomitant]
     Active Substance: ATORVASTATIN
     Indication: Product used for unknown indication
     Dosage: TABLET 20 MG (MILLIGRAM)
     Route: 048
  9. AMLODIPINE\VALSARTAN [Concomitant]
     Active Substance: AMLODIPINE\VALSARTAN
     Indication: Product used for unknown indication
     Dosage: TABLET 5/80 MG (MILLIGRAM)
     Route: 048
  10. ALFACALCIDOL [Concomitant]
     Active Substance: ALFACALCIDOL
     Indication: Product used for unknown indication
     Dosage: CAPSULE 0.25 UG (MICROGRAM)
     Route: 048
  11. PANTOPRAZOLE [Concomitant]
     Active Substance: PANTOPRAZOLE
     Indication: Product used for unknown indication
     Dosage: GASTRO-RESISTANT (MAAGSAPRESISTENTE) TABLET, 20 MG (MILLIGRAM)
     Route: 048
  12. HYDROQUININE DRAGEE [Concomitant]
     Indication: Product used for unknown indication
     Route: 048

REACTIONS (3)
  - Medication error [Not Recovered/Not Resolved]
  - Drug interaction [Not Recovered/Not Resolved]
  - Subdural haemorrhage [Not Recovered/Not Resolved]
